FAERS Safety Report 14455561 (Version 1)
Quarter: 2018Q1

REPORT INFORMATION
  Report Type: Report from Study
  Country: None (occurrence: US)
  Receive Date: 20180129
  Receipt Date: 20180129
  Transmission Date: 20180509
  Serious: Yes (Hospitalization)
  Sender: FDA-Public Use
  Company Number: US-ABBVIE-18K-163-2235747-00

PATIENT
  Age: 31 Year
  Sex: Male

DRUGS (2)
  1. HUMIRA [Suspect]
     Active Substance: ADALIMUMAB
     Indication: PRODUCT USED FOR UNKNOWN INDICATION
     Route: 058
  2. HUMIRA [Suspect]
     Active Substance: ADALIMUMAB
     Route: 058
     Dates: start: 201801

REACTIONS (10)
  - Colitis [Unknown]
  - Amnesia [Unknown]
  - Fatigue [Unknown]
  - Intra-abdominal pressure increased [Not Recovered/Not Resolved]
  - Defaecation urgency [Unknown]
  - Chills [Unknown]
  - Constipation [Unknown]
  - Musculoskeletal pain [Unknown]
  - Sleep disorder [Unknown]
  - White blood cell count increased [Unknown]

NARRATIVE: CASE EVENT DATE: 201801
